FAERS Safety Report 7102997-8 (Version None)
Quarter: 2010Q4

REPORT INFORMATION
  Report Type: 
  Country: None (occurrence: None)
  Receive Date: 20101115
  Receipt Date: 20080211
  Transmission Date: 20110411
  Serious: Yes (Hospitalization)
  Sender: FDA-Public Use
  Company Number: US-KINGPHARMUSA00001-K200800182

PATIENT
  Sex: Female

DRUGS (5)
  1. ALTACE [Suspect]
     Indication: HYPERTENSION
     Route: 048
     Dates: start: 20071201, end: 20080102
  2. REBIF [Suspect]
     Indication: MULTIPLE SCLEROSIS
     Dosage: 44 MCG, TIW
     Route: 058
     Dates: start: 20071024, end: 20080104
  3. NEURONTIN [Concomitant]
     Indication: HYPOAESTHESIA
     Dosage: UNK, UNK
  4. NEURONTIN [Concomitant]
     Indication: PARAESTHESIA
  5. NEURONTIN [Concomitant]
     Indication: MUSCLE SPASMS

REACTIONS (2)
  - ANGIOEDEMA [None]
  - HYPERSENSITIVITY [None]
